FAERS Safety Report 6933256-1 (Version None)
Quarter: 2010Q3

REPORT INFORMATION
  Report Type: 
  Country: None (occurrence: None)
  Receive Date: 20100818
  Receipt Date: 20100818
  Transmission Date: 20110219
  Serious: Yes (Hospitalization)
  Sender: FDA-Public Use
  Company Number: None

PATIENT
  Sex: Male

DRUGS (2)
  1. DOCETAXEL [Suspect]
     Indication: NON-SMALL CELL LUNG CANCER
     Dosage: 60MG/M2, Q21DAYS, IV NOT ADMINISTERED
     Route: 042
  2. RAD001 [Suspect]
     Indication: NON-SMALL CELL LUNG CANCER
     Dosage: 5 MG, D1-19, ORAL NOT ADMINISTERED
     Route: 048

REACTIONS (4)
  - BACK PAIN [None]
  - MALIGNANT NEOPLASM PROGRESSION [None]
  - MUSCULOSKELETAL PAIN [None]
  - NON-SMALL CELL LUNG CANCER [None]
